FAERS Safety Report 24592382 (Version 3)
Quarter: 2025Q4

REPORT INFORMATION
  Report Type: Report from Study
  Country: US (occurrence: US)
  Receive Date: 20241108
  Receipt Date: 20251214
  Transmission Date: 20260118
  Serious: Yes (Other)
  Sender: ABBVIE
  Company Number: US-ABBVIE-5802931

PATIENT
  Sex: Female

DRUGS (2)
  1. SKYRIZI [Suspect]
     Active Substance: RISANKIZUMAB-RZAA
     Indication: Psoriatic arthropathy
     Route: 058
     Dates: start: 20231231
  2. SKYRIZI [Suspect]
     Active Substance: RISANKIZUMAB-RZAA
     Dosage: RESTART
     Route: 058
     Dates: start: 2024, end: 2024

REACTIONS (6)
  - Arthropathy [Unknown]
  - Bronchitis [Unknown]
  - Sinusitis [Recovering/Resolving]
  - Arthropathy [Unknown]
  - Fatigue [Unknown]
  - Fall [Unknown]
